FAERS Safety Report 7787226-4 (Version None)
Quarter: 2011Q3

REPORT INFORMATION
  Report Type: 
  Country: None (occurrence: None)
  Receive Date: 20110927
  Receipt Date: 20110912
  Transmission Date: 20111222
  Serious: Yes (Hospitalization, Other)
  Sender: FDA-Public Use
  Company Number: AUR-APL-2011-00853

PATIENT
  Age: 36 Year
  Sex: Female

DRUGS (4)
  1. LACOSAMIDE [Suspect]
     Indication: EPILEPSY
  2. TOPIRAMATE [Suspect]
     Indication: EPILEPSY
     Dosage: 250 MG (250 MG,1 IN 1 D)
  3. PHENYTOIN [Suspect]
     Indication: EPILEPSY
     Dosage: 150 MG (150 MG,1 IN 1 D)
  4. OXCARBAZEPINE [Suspect]
     Indication: EPILEPSY
     Dosage: 1350 MG (1350 MG,1 IN 1 D)

REACTIONS (5)
  - CONVULSION [None]
  - DIPLOPIA [None]
  - BALANCE DISORDER [None]
  - NEUROTOXICITY [None]
  - DRUG LEVEL DECREASED [None]
